FAERS Safety Report 5003785-9 (Version None)
Quarter: 2006Q2

REPORT INFORMATION
  Report Type: 
  Country: None (occurrence: None)
  Receive Date: 20060516
  Receipt Date: 20051005
  Transmission Date: 20061013
  Serious: Yes (Hospitalization, Other)
  Sender: FDA-Public Use
  Company Number: US-MERCK-0510USA04250

PATIENT
  Age: 68 Year
  Sex: Male
  Weight: 86 kg

DRUGS (5)
  1. VIOXX [Suspect]
     Indication: OSTEOARTHRITIS
     Route: 048
     Dates: start: 20001101, end: 20011001
  2. VIOXX [Suspect]
     Route: 048
     Dates: start: 20011101, end: 20040901
  3. VIOXX [Suspect]
     Route: 048
     Dates: start: 20001101, end: 20011001
  4. VIOXX [Suspect]
     Route: 048
     Dates: start: 20011101, end: 20040901
  5. ADVIL [Concomitant]
     Route: 065

REACTIONS (8)
  - ANGINA PECTORIS [None]
  - CEREBRAL INFARCTION [None]
  - CHEST PAIN [None]
  - CORONARY ARTERY DISEASE [None]
  - DIVERTICULITIS [None]
  - MYOCARDIAL ISCHAEMIA [None]
  - RADICULAR SYNDROME [None]
  - VASCULAR GRAFT OCCLUSION [None]
